FAERS Safety Report 5383610-7 (Version None)
Quarter: 2007Q3

REPORT INFORMATION
  Report Type: 
  Country: None (occurrence: None)
  Receive Date: 20070706
  Receipt Date: 20070625
  Transmission Date: 20080115
  Serious: No
  Sender: FDA-Public Use
  Company Number: 2007-160536-NL

PATIENT
  Age: 16 Year
  Sex: Female

DRUGS (6)
  1. VECURONIUM BROMIDE [Suspect]
     Indication: INDUCTION OF ANAESTHESIA
  2. PROPOFOL [Suspect]
     Indication: INDUCTION OF ANAESTHESIA
  3. FENTANYL TRANSDERMAL SYSTEM [Suspect]
     Dosage: INDUCTION OF ANESTHESIA
  4. NITROUS OXIDE [Suspect]
     Indication: MAINTENANCE OF ANAESTHESIA
     Dosage: RESPIRATORY (INHALATION)
     Route: 055
  5. OXYGEN [Suspect]
     Indication: MAINTENANCE OF ANAESTHESIA
     Dosage: RESPIRATORY (INHALATION)
     Route: 055
  6. ISOFLURANE [Suspect]
     Indication: MAINTENANCE OF ANAESTHESIA
     Dosage: RESPIRATORY (INHALATION)
     Route: 055

REACTIONS (2)
  - ELECTROCARDIOGRAM T WAVE AMPLITUDE INCREASED [None]
  - HYPERKALAEMIA [None]
